FAERS Safety Report 7349064-6 (Version None)
Quarter: 2011Q1

REPORT INFORMATION
  Report Type: 
  Country: None (occurrence: None)
  Receive Date: 20110314
  Receipt Date: 20110303
  Transmission Date: 20110831
  Serious: Yes (Other)
  Sender: FDA-Public Use
  Company Number: JP-CEPHALON-2011001114

PATIENT
  Sex: Female
  Weight: 57 kg

DRUGS (9)
  1. SULFAMETOXAZOL/TRIMETOPRIM [Concomitant]
  2. FLUCONAZOLE [Suspect]
     Indication: PROPHYLAXIS
     Route: 048
     Dates: start: 20110105
  3. REBAMIPIDE [Concomitant]
     Dates: start: 20110113
  4. APREPITANT [Concomitant]
     Dates: start: 20110105, end: 20110108
  5. MAGNESIUM OXIDE [Concomitant]
  6. SENNOSIDE [Concomitant]
  7. BENDAMUSTINE HCL [Suspect]
     Indication: MANTLE CELL LYMPHOMA
     Route: 042
     Dates: start: 20110105, end: 20110106
  8. ACYCLOVIR [Suspect]
     Indication: PROPHYLAXIS
  9. BENDAMUSTINE HCL [Suspect]
     Route: 042
     Dates: start: 20110126, end: 20110127

REACTIONS (6)
  - HYPERAMYLASAEMIA [None]
  - ANAEMIA [None]
  - LYMPHOCYTE COUNT DECREASED [None]
  - PHLEBITIS [None]
  - PLATELET COUNT DECREASED [None]
  - WHITE BLOOD CELL COUNT DECREASED [None]
